FAERS Safety Report 13915360 (Version 2)
Quarter: 2017Q3

REPORT INFORMATION
  Report Type: Spontaneous
  Country: US (occurrence: US)
  Receive Date: 20170829
  Receipt Date: 20170927
  Transmission Date: 20171127
  Serious: No
  Sender: FDA-Public Use
  Company Number: US-CELGENEUS-USA-20170807962

PATIENT
  Age: 24 Year
  Sex: Female

DRUGS (2)
  1. OTEZLA [Suspect]
     Active Substance: APREMILAST
     Indication: GRANULOMA ANNULARE
     Dosage: 60 MILLIGRAM
     Route: 048
     Dates: start: 20170806
  2. OTEZLA [Suspect]
     Active Substance: APREMILAST
     Indication: PSORIASIS
     Route: 048
     Dates: start: 20160625, end: 20170625

REACTIONS (2)
  - Headache [Unknown]
  - Granuloma annulare [Not Recovered/Not Resolved]

NARRATIVE: CASE EVENT DATE: 20160625
